FAERS Safety Report 4790740-7 (Version None)
Quarter: 2005Q4

REPORT INFORMATION
  Report Type: 
  Country: None (occurrence: None)
  Receive Date: 20051006
  Receipt Date: 20050926
  Transmission Date: 20060501
  Serious: Yes (Other)
  Sender: FDA-Public Use
  Company Number: AU-MERCK-0509AUS00139

PATIENT
  Age: 59 Year
  Sex: Female
  Weight: 57 kg

DRUGS (1)
  1. ZETIA [Suspect]
     Indication: METABOLIC DISORDER
     Route: 048
     Dates: start: 20040820, end: 20041120

REACTIONS (3)
  - DRUG INEFFECTIVE [None]
  - HYPERLIPIDAEMIA [None]
  - RASH PRURITIC [None]
